FAERS Safety Report 21967908 (Version 1)
Quarter: 2023Q1

REPORT INFORMATION
  Report Type: Spontaneous
  Country: PH (occurrence: PH)
  Receive Date: 20230208
  Receipt Date: 20230208
  Transmission Date: 20230417
  Serious: Yes (Other)
  Sender: FDA-Public Use
  Company Number: PH-002147023-NVSC2023PH026886

PATIENT
  Age: 80 Year
  Sex: Male

DRUGS (1)
  1. BROLUCIZUMAB [Suspect]
     Active Substance: BROLUCIZUMAB
     Indication: Age-related macular degeneration
     Dosage: 0.05 ML, QMO
     Route: 050

REACTIONS (3)
  - Vitritis [Unknown]
  - Vision blurred [Unknown]
  - Subretinal fluid [Unknown]
